FAERS Safety Report 15614130 (Version 3)
Quarter: 2018Q4

REPORT INFORMATION
  Report Type: Report from Study
  Country: DE (occurrence: DE)
  Receive Date: 20181113
  Receipt Date: 20181128
  Transmission Date: 20190205
  Serious: Yes (Hospitalization, Other)
  Sender: FDA-Public Use
  Company Number: DE-SHIRE-DE201842892

PATIENT

DRUGS (1)
  1. TEDUGLUTIDE [Suspect]
     Active Substance: TEDUGLUTIDE
     Indication: SHORT-BOWEL SYNDROME
     Dosage: 0.26 ML, QOD
     Route: 058
     Dates: start: 20150105, end: 20180822

REACTIONS (1)
  - Gastrointestinal polyp [Not Recovered/Not Resolved]

NARRATIVE: CASE EVENT DATE: 201808
